FAERS Safety Report 9120298 (Version 1)
Quarter: 2013Q1

REPORT INFORMATION
  Report Type: Spontaneous
  Country: GB (occurrence: GB)
  Receive Date: 20130226
  Receipt Date: 20130226
  Transmission Date: 20140127
  Serious: Yes (Death, Hospitalization)
  Sender: FDA-Public Use
  Company Number: GB-MYLANLABS-2013S1003464

PATIENT
  Sex: Female

DRUGS (18)
  1. TAMOXIFEN [Suspect]
     Indication: PRODUCT USED FOR UNKNOWN INDICATION
     Dates: start: 20051113, end: 20090921
  2. WARFARIN [Suspect]
     Indication: PRODUCT USED FOR UNKNOWN INDICATION
     Dates: start: 20051114
  3. AUGMENTIN [Suspect]
     Indication: PRODUCT USED FOR UNKNOWN INDICATION
     Dates: start: 20091105, end: 20091112
  4. DIGOXIN [Suspect]
     Indication: PRODUCT USED FOR UNKNOWN INDICATION
     Dates: start: 20051113, end: 20060307
  5. FUROSEMIDE [Suspect]
     Indication: PRODUCT USED FOR UNKNOWN INDICATION
     Dates: start: 20091021
  6. AMOXICILLIN [Concomitant]
     Indication: LOWER RESPIRATORY TRACT INFECTION
     Dates: start: 20091220
  7. ATENOLOL [Concomitant]
     Indication: PRODUCT USED FOR UNKNOWN INDICATION
     Dates: start: 20051113, end: 20091220
  8. BUCCASTEM [Concomitant]
     Indication: NAUSEA
     Dates: start: 20091104, end: 20091105
  9. BUSCOPAN [Concomitant]
     Indication: ABDOMINAL PAIN
     Dates: start: 20091104, end: 20091110
  10. CANDESARTAN [Concomitant]
     Indication: PRODUCT USED FOR UNKNOWN INDICATION
     Dates: start: 20090313
  11. CO-CODAMOL [Concomitant]
     Indication: CHEST PAIN
     Dates: start: 20091220
  12. CO-CODAMOL [Concomitant]
     Indication: BACK PAIN
     Dates: start: 20091220
  13. FERROUS GLUCONATE [Concomitant]
     Indication: BACK PAIN
     Dates: start: 1978
  14. FERROUS SULPHATE [Concomitant]
     Indication: ANAEMIA
     Dates: start: 20091127
  15. LACTULOSE [Concomitant]
     Indication: BACK PAIN
     Route: 048
     Dates: start: 20091220
  16. LACTULOSE [Concomitant]
     Indication: ABDOMINAL PAIN UPPER
     Route: 048
     Dates: start: 20091220
  17. LEVOTHYROXINE SODIUM [Concomitant]
     Indication: PRODUCT USED FOR UNKNOWN INDICATION
     Dates: start: 20090615
  18. TIOTROPIUM BROMIDE [Concomitant]
     Indication: PRODUCT USED FOR UNKNOWN INDICATION
     Route: 055
     Dates: start: 20090814

REACTIONS (2)
  - Aortic aneurysm [Fatal]
  - Thrombocytopenia [Not Recovered/Not Resolved]
